FAERS Safety Report 10100855 (Version 2)
Quarter: 2014Q2

REPORT INFORMATION
  Report Type: Spontaneous
  Country: JP (occurrence: JP)
  Receive Date: 20140423
  Receipt Date: 20140423
  Transmission Date: 20141212
  Serious: Yes (Congenital Anomaly)
  Sender: FDA-Public Use
  Company Number: JP-DSJP-DSJ-2010-18560

PATIENT
  Sex: 0

DRUGS (1)
  1. OLMETEC TABLETS 20MG [Suspect]
     Indication: HYPERTENSION
     Route: 048
     Dates: start: 20100921, end: 20101012

REACTIONS (4)
  - Oligohydramnios [Recovered/Resolved with Sequelae]
  - Foetal growth restriction [Not Recovered/Not Resolved]
  - Haemorrhage [Recovering/Resolving]
  - Exposure during pregnancy [Unknown]
